FAERS Safety Report 9897995 (Version 1)
Quarter: 2014Q1

REPORT INFORMATION
  Report Type: Spontaneous
  Country: US (occurrence: US)
  Receive Date: 20140214
  Receipt Date: 20140214
  Transmission Date: 20141002
  Serious: Yes (Hospitalization)
  Sender: FDA-Public Use
  Company Number: US-B.I. PHARMACEUTICALS,INC./RIDGEFIELD-2014-BI-06223BP

PATIENT
  Age: 68 Year
  Sex: Female
  Weight: 69 kg

DRUGS (8)
  1. COMBIVENT [Suspect]
     Indication: CHRONIC OBSTRUCTIVE PULMONARY DISEASE
     Dosage: DOSE PER APPLICATION: 20 MCG/100 MCG; DAILY DOSE: 80 MCG/400 MCG
     Route: 055
     Dates: start: 20131007
  2. GABAPENTIN [Concomitant]
     Indication: NEUROPATHY PERIPHERAL
     Dosage: 600 MG
     Route: 048
  3. FAMOTIDINE [Concomitant]
     Indication: GASTROOESOPHAGEAL REFLUX DISEASE
     Dosage: 20 MG
     Route: 048
  4. SYMBICORT [Concomitant]
     Route: 055
  5. QUINAPRIL [Concomitant]
     Dosage: 40 MG
     Route: 048
  6. ATENOLOL [Concomitant]
     Dosage: 50 MG
     Route: 048
  7. OCCUVITE [Concomitant]
     Route: 048
  8. CENTRUM SILVER [Concomitant]
     Route: 048

REACTIONS (1)
  - Dyspnoea [Recovered/Resolved]
